FAERS Safety Report 7733815-2 (Version None)
Quarter: 2011Q3

REPORT INFORMATION
  Report Type: 
  Country: None (occurrence: None)
  Receive Date: 20110907
  Receipt Date: 20110829
  Transmission Date: 20111222
  Serious: Yes (Death)
  Sender: FDA-Public Use
  Company Number: BE-CELGENEUS-013-50794-11080749

PATIENT
  Sex: Male

DRUGS (32)
  1. ESOMEPRAZOLE SODIUM [Concomitant]
     Route: 065
     Dates: start: 20110505
  2. PLATELETS [Concomitant]
     Route: 065
     Dates: start: 20110713, end: 20110713
  3. MEROPENEM [Concomitant]
     Route: 065
     Dates: start: 20110709, end: 20110713
  4. METHYLPREDNISOLONE [Concomitant]
     Route: 065
     Dates: start: 20110711, end: 20110714
  5. NOVABAN [Concomitant]
     Route: 065
     Dates: start: 20110705, end: 20110706
  6. AMOXICILLIN [Concomitant]
     Route: 065
     Dates: start: 20110415
  7. CEFEPIME [Concomitant]
     Route: 065
     Dates: start: 20110422, end: 20110505
  8. ACYCLOVIR [Concomitant]
     Route: 065
     Dates: start: 20110130
  9. BETAMETHASONE [Concomitant]
     Route: 065
     Dates: start: 20110524
  10. PLATELETS [Concomitant]
     Route: 065
     Dates: start: 20110415, end: 20110626
  11. PLATELETS [Concomitant]
     Route: 065
     Dates: start: 20110722, end: 20110722
  12. VIDAZA [Suspect]
     Dosage: 138 MILLIGRAM
     Route: 065
     Dates: start: 20110726, end: 20110801
  13. FOLIC ACID [Concomitant]
     Route: 065
     Dates: start: 20110124
  14. PLATELETS [Concomitant]
     Route: 065
     Dates: start: 20110709, end: 20110709
  15. ACETAMINOPHEN [Concomitant]
     Route: 065
     Dates: start: 20110705, end: 20110711
  16. CIPROFLOXACIN [Concomitant]
     Route: 065
     Dates: start: 20110520
  17. MAALOX [Concomitant]
     Route: 065
     Dates: start: 20110411
  18. RED BLOOD CELLS [Concomitant]
     Route: 065
     Dates: start: 20110726, end: 20110726
  19. SYNGEL [Concomitant]
     Route: 065
     Dates: start: 20110419
  20. PLATELETS [Concomitant]
     Route: 065
     Dates: start: 20110703, end: 20110704
  21. PLATELETS [Concomitant]
     Route: 065
     Dates: start: 20110706, end: 20110706
  22. FLUCONAZOLE [Concomitant]
     Route: 065
     Dates: start: 20110524
  23. CIPROFLOXACIN [Concomitant]
     Route: 065
     Dates: start: 20110505, end: 20110516
  24. ESOMEPRAZOLE SODIUM [Concomitant]
     Route: 065
     Dates: start: 20110411, end: 20110505
  25. PLATELETS [Concomitant]
     Route: 065
     Dates: start: 20110726, end: 20110726
  26. RED BLOOD CELLS [Concomitant]
     Route: 065
     Dates: start: 20110415, end: 20110707
  27. RANITIDINE [Concomitant]
     Route: 065
     Dates: start: 20110227
  28. CIPROFLOXACIN HCL [Concomitant]
     Route: 065
     Dates: start: 20110520
  29. PLATELETS [Concomitant]
     Route: 065
     Dates: start: 20110701, end: 20110701
  30. PLATELETS [Concomitant]
     Route: 065
     Dates: start: 20110718, end: 20110718
  31. PIPERACILLIN AND TAZOBACTAM [Concomitant]
     Route: 065
     Dates: start: 20110616, end: 20110709
  32. CIPROFLOXACIN [Concomitant]
     Route: 065
     Dates: start: 20110415

REACTIONS (2)
  - ENTEROCOLITIS INFECTIOUS [None]
  - CLOSTRIDIUM DIFFICILE SEPSIS [None]
